FAERS Safety Report 6212785-2 (Version None)
Quarter: 2009Q2

REPORT INFORMATION
  Report Type: 
  Country: None (occurrence: None)
  Receive Date: 20090603
  Receipt Date: 20090529
  Transmission Date: 20091009
  Serious: Yes (Hospitalization, Other)
  Sender: FDA-Public Use
  Company Number: GB-JNJFOC-20090600201

PATIENT
  Sex: Female
  Weight: 24.6 kg

DRUGS (1)
  1. CONCERTA [Suspect]
     Indication: ATTENTION DEFICIT/HYPERACTIVITY DISORDER
     Route: 048

REACTIONS (5)
  - DELIRIUM [None]
  - HEADACHE [None]
  - HEPATIC ENZYME ABNORMAL [None]
  - PLATELET COUNT DECREASED [None]
  - PYREXIA [None]
